FAERS Safety Report 24101809 (Version 1)
Quarter: 2024Q3

REPORT INFORMATION
  Report Type: Report from Study
  Country: US (occurrence: None)
  Receive Date: 20240717
  Receipt Date: 20240717
  Transmission Date: 20241016
  Serious: Yes (Hospitalization, Other)
  Sender: ASTRAZENECA
  Company Number: 2019SE26683

PATIENT
  Age: 24597 Day
  Sex: Female

DRUGS (1)
  1. TAGRISSO [Suspect]
     Active Substance: OSIMERTINIB
     Indication: Lung carcinoma cell type unspecified stage 0
     Route: 048
     Dates: start: 20190207

REACTIONS (17)
  - Pericardial haemorrhage [Unknown]
  - Localised infection [Unknown]
  - Pericardial effusion [Unknown]
  - Peripheral swelling [Recovered/Resolved]
  - Pleural effusion [Unknown]
  - Thrombosis [Unknown]
  - Rash [Unknown]
  - Tremor [Unknown]
  - Muscle spasms [Unknown]
  - Asthenia [Not Recovered/Not Resolved]
  - Weight decreased [Not Recovered/Not Resolved]
  - Decreased appetite [Not Recovered/Not Resolved]
  - Depressed mood [Not Recovered/Not Resolved]
  - Nasal dryness [Not Recovered/Not Resolved]
  - Epistaxis [Recovered/Resolved]
  - Nail disorder [Unknown]
  - Drug ineffective [Not Recovered/Not Resolved]

NARRATIVE: CASE EVENT DATE: 20190310
